FAERS Safety Report 8211827-2 (Version None)
Quarter: 2012Q1

REPORT INFORMATION
  Report Type: 
  Country: None (occurrence: None)
  Receive Date: 20120315
  Receipt Date: 20120308
  Transmission Date: 20120608
  Serious: Yes (Hospitalization)
  Sender: FDA-Public Use
  Company Number: FR-PFIZER INC-FR-WYE-H09535809

PATIENT
  Age: 68 Year
  Sex: Male

DRUGS (14)
  1. NIMOTOP [Suspect]
     Dosage: UNK
     Route: 048
     Dates: start: 20081210, end: 20081215
  2. TRAMADOL HCL [Concomitant]
     Dosage: UNK
     Route: 065
     Dates: start: 20081201, end: 20081205
  3. PARACETAMOL [Concomitant]
     Dosage: UNK
     Route: 065
     Dates: start: 20081118, end: 20081205
  4. CIPROFLOXACIN [Concomitant]
     Dosage: UNK
     Route: 065
     Dates: start: 20081115, end: 20081117
  5. POLARAMINE [Concomitant]
     Dosage: UNK
  6. PANTOPRAZOLE SODIUM [Suspect]
     Dosage: UNKNOWN
     Route: 048
     Dates: start: 20081118, end: 20081205
  7. NIMOTOP [Suspect]
     Dosage: UNK
     Route: 048
     Dates: start: 20081107, end: 20081205
  8. OMEPRAZOLE [Suspect]
     Dosage: UNK
     Route: 048
     Dates: start: 20081205, end: 20081219
  9. CORVASAL [Concomitant]
     Dosage: UNK
     Route: 065
     Dates: start: 20081109, end: 20081114
  10. XYZAL [Concomitant]
     Dosage: ONE MORNING DOSE
  11. ALFUZOSIN HCL [Concomitant]
     Dosage: 10
     Route: 065
  12. ATORVASTATIN [Suspect]
     Dosage: 40, 1X/DAY
     Route: 048
     Dates: start: 20081110, end: 20081219
  13. PHENYTOIN SODIUM [Suspect]
     Indication: CONVULSION
     Dosage: UNK
     Route: 048
     Dates: start: 20081107, end: 20081219
  14. LOVENOX [Suspect]
     Dosage: 0.4 ML/DAY
     Route: 058
     Dates: start: 20081107, end: 20081219

REACTIONS (5)
  - PEMPHIGUS [None]
  - ACUTE GENERALISED EXANTHEMATOUS PUSTULOSIS [None]
  - IMPETIGO [None]
  - DRUG RASH WITH EOSINOPHILIA AND SYSTEMIC SYMPTOMS [None]
  - SUBCORNEAL PUSTULAR DERMATOSIS [None]
